FAERS Safety Report 5100950-7 (Version None)
Quarter: 2006Q3

REPORT INFORMATION
  Report Type: 
  Country: None (occurrence: None)
  Receive Date: 20060911
  Receipt Date: 20060831
  Transmission Date: 20061208
  Serious: Yes (Death)
  Sender: FDA-Public Use
  Company Number: US-JNJFOC-20060900266

PATIENT
  Sex: Male

DRUGS (7)
  1. REMICADE [Suspect]
     Indication: RHEUMATOID ARTHRITIS
     Route: 042
  2. CYTOXAN [Concomitant]
  3. HYDROCODONE BITARTRATE [Concomitant]
  4. MULTIVITAMIN [Concomitant]
  5. NAPROSYN [Concomitant]
  6. PREDNISONE TAB [Concomitant]
  7. NEXIUM [Concomitant]

REACTIONS (1)
  - HISTOPLASMOSIS DISSEMINATED [None]
